FAERS Safety Report 9883113 (Version 2)
Quarter: 2014Q1

REPORT INFORMATION
  Report Type: Report from Study
  Country: US (occurrence: US)
  Receive Date: 20140208
  Receipt Date: 20140219
  Transmission Date: 20141002
  Serious: Yes (Death, Life-Threatening, Hospitalization)
  Sender: FDA-Public Use
  Company Number: US-JNJFOC-20140204484

PATIENT
  Age: 66 Year
  Sex: Female
  Weight: 80.27 kg

DRUGS (5)
  1. IBUPROFEN [Suspect]
     Indication: RHEUMATOID ARTHRITIS
     Route: 048
     Dates: start: 20121212
  2. IBUPROFEN [Suspect]
     Indication: RHEUMATOID ARTHRITIS
     Route: 048
  3. IBUPROFEN [Suspect]
     Indication: OSTEOARTHRITIS
     Route: 048
     Dates: start: 20121212
  4. IBUPROFEN [Suspect]
     Indication: OSTEOARTHRITIS
     Route: 048
  5. NEXIUM [Concomitant]
     Indication: GASTROINTESTINAL DISORDER THERAPY
     Route: 048
     Dates: start: 20121212

REACTIONS (1)
  - Acute myocardial infarction [Fatal]
